FAERS Safety Report 8743028 (Version 2)
Quarter: 2012Q4

REPORT INFORMATION
  Report Type: 
  Country: US (occurrence: US)
  Receive Date: 20120824
  Receipt Date: 20120911
  Transmission Date: 20130627
  Serious: Yes (Hospitalization)
  Sender: FDA-Public Use
  Company Number: US-FRI-1000037888

PATIENT
  Age: 73 Year
  Sex: Male
  Weight: 88.4 kg

DRUGS (2)
  1. CELEXA [Suspect]
     Dosage: 20 mg
  2. INLYTA [Suspect]
     Indication: RENAL CELL CARCINOMA
     Dosage: 10 mg
     Route: 048
     Dates: start: 20120703, end: 20120716

REACTIONS (40)
  - Mental status changes [Recovered/Resolved]
  - Fatigue [None]
  - Dyspnoea exertional [None]
  - Headache [None]
  - Hypophagia [None]
  - Dehydration [None]
  - Red blood cell count decreased [None]
  - Mean cell volume increased [None]
  - Mean cell haemoglobin increased [None]
  - Mean cell haemoglobin concentration decreased [None]
  - Red cell distribution width increased [None]
  - Mean platelet volume increased [None]
  - Blood glucose increased [None]
  - Blood magnesium decreased [None]
  - Aphasia [None]
  - Body temperature increased [None]
  - Spinal osteoarthritis [None]
  - Procedural complication [None]
  - Blood pressure systolic increased [None]
  - Haemoglobin decreased [None]
  - Prerenal failure [None]
  - Carbon dioxide decreased [None]
  - Cerebral atrophy [None]
  - Cerebral ischaemia [None]
  - Cerebral microangiopathy [None]
  - Respiratory failure [None]
  - Weight decreased [None]
  - Diarrhoea [None]
  - Confusional state [None]
  - Gait disturbance [None]
  - Incoherent [None]
  - Asthenia [None]
  - Furuncle [None]
  - Encephalopathy [None]
  - Macrocytosis [None]
  - Treatment noncompliance [None]
  - Toxicity to various agents [None]
  - Haematocrit decreased [None]
  - Blood albumin decreased [None]
  - Alanine aminotransferase decreased [None]
